FAERS Safety Report 9301666 (Version 1)
Quarter: 2013Q2

REPORT INFORMATION
  Report Type: Spontaneous
  Country: US (occurrence: None)
  Receive Date: 20130520
  Receipt Date: 20130520
  Transmission Date: 20140414
  Serious: No
  Sender: FDA-Public Use
  Company Number: None

PATIENT
  Age: 63 Year
  Sex: Female

DRUGS (1)
  1. FENTANYL [Suspect]
     Indication: PAIN
     Dosage: 25MCG/HR EVERY 72 HRS TRANSDERMAL
     Route: 062
     Dates: start: 20130223

REACTIONS (2)
  - Application site erythema [None]
  - Product adhesion issue [None]
